FAERS Safety Report 13916655 (Version 1)
Quarter: 2017Q3

REPORT INFORMATION
  Report Type: Spontaneous
  Country: US (occurrence: US)
  Receive Date: 20170829
  Receipt Date: 20170829
  Transmission Date: 20171127
  Serious: No
  Sender: FDA-Public Use
  Company Number: US-BAYER-2017-161041

PATIENT
  Age: 88 Year
  Sex: Female
  Weight: 53.52 kg

DRUGS (1)
  1. MIRALAX [Suspect]
     Active Substance: POLYETHYLENE GLYCOL 3350
     Indication: GASTROINTESTINAL DISORDER
     Dosage: 1 DF, UNK (1 DOSE)
     Route: 048
     Dates: start: 2011

REACTIONS (3)
  - Diarrhoea [Recovered/Resolved]
  - Incorrect drug administration duration [Unknown]
  - Abdominal distension [Not Recovered/Not Resolved]

NARRATIVE: CASE EVENT DATE: 2011
